FAERS Safety Report 9994839 (Version 2)
Quarter: 2014Q1

REPORT INFORMATION
  Report Type: Spontaneous
  Country: AT (occurrence: AT)
  Receive Date: 20140311
  Receipt Date: 20140311
  Transmission Date: 20141002
  Serious: Yes (Other)
  Sender: FDA-Public Use
  Company Number: AT-ROCHE-1354950

PATIENT
  Sex: Female

DRUGS (8)
  1. AVASTIN [Suspect]
     Indication: PRODUCT USED FOR UNKNOWN INDICATION
     Dosage: 6 CYCLES IN TOTAL (PLUS 2 DOSE-REDUCED CYCLES)
     Route: 065
     Dates: start: 201206, end: 201211
  2. AVASTIN [Suspect]
     Dosage: MAINTENANCE THERAPY
     Route: 065
     Dates: start: 201212, end: 201312
  3. CONCOR PLUS [Concomitant]
  4. ACEMIN [Concomitant]
     Route: 065
  5. PANTOLOC [Concomitant]
     Route: 065
  6. CAL-D-VITA [Concomitant]
  7. LOVENOX [Concomitant]
     Route: 058
  8. THROMBO ASS [Concomitant]
     Route: 065

REACTIONS (2)
  - Cerebrovascular accident [Unknown]
  - Hemiparesis [Unknown]
